FAERS Safety Report 22152543 (Version 2)
Quarter: 2023Q2

REPORT INFORMATION
  Report Type: Spontaneous
  Country: US (occurrence: US)
  Receive Date: 20230329
  Receipt Date: 20230505
  Transmission Date: 20230722
  Serious: Yes (Hospitalization)
  Sender: FDA-Public Use
  Company Number: US-MYLANLABS-2023M1032742

PATIENT
  Age: 16 Year
  Sex: Male
  Weight: 88 kg

DRUGS (8)
  1. DEXMEDETOMIDINE [Suspect]
     Active Substance: DEXMEDETOMIDINE
     Indication: General anaesthesia
     Dosage: UNK (INTERMITTENT BOLUSES...
     Route: 042
  2. DEXMEDETOMIDINE [Suspect]
     Active Substance: DEXMEDETOMIDINE
     Dosage: 0.3 MICROGRAM/KILOGRAM, QH (INFUSION; ON DAY 2)
     Route: 042
  3. REMIFENTANIL [Suspect]
     Active Substance: REMIFENTANIL
     Indication: General anaesthesia
     Dosage: UNK, INFUSION; MAINTENANCE DOSE; ON DAY 2
     Route: 065
  4. PROPOFOL [Suspect]
     Active Substance: PROPOFOL
     Indication: General anaesthesia
     Dosage: UNK, INFUSION; INDUCTION DOSE; TOTAL DOSE...
     Route: 042
  5. PROPOFOL [Suspect]
     Active Substance: PROPOFOL
     Dosage: UNK, INFUSION; INDUCTION DOSE; ON DAY 2
     Route: 042
  6. PROPOFOL [Suspect]
     Active Substance: PROPOFOL
     Dosage: UNK, INFUSION; MAINTENANCE DOSE; ON DAY 2
     Route: 042
  7. SEVOFLURANE [Suspect]
     Active Substance: SEVOFLURANE
     Indication: General anaesthesia
     Dosage: UNK, INFUSION; MAINTENANCE DOSE; TOTAL DOSE OF GENERAL ANAESTHESIA COMPRISING DEXMEDETOMIDINE, PROPO
     Route: 042
  8. SEVOFLURANE [Suspect]
     Active Substance: SEVOFLURANE
     Dosage: UNK, INFUSION; MAINTENANCE DOSE; ON DAY 2
     Route: 042

REACTIONS (1)
  - Diabetes insipidus [Recovered/Resolved]
